FAERS Safety Report 5520246-9 (Version None)
Quarter: 2007Q4

REPORT INFORMATION
  Report Type: 
  Country: None (occurrence: None)
  Receive Date: 20071117
  Receipt Date: 20060727
  Transmission Date: 20080405
  Serious: Yes (Hospitalization)
  Sender: FDA-Public Use
  Company Number: PHHO2006DE18876

PATIENT

DRUGS (5)
  1. PROLEUKIN [Suspect]
     Indication: RENAL CELL CARCINOMA STAGE UNSPECIFIED
     Dosage: 18 MIU, UNK
     Route: 058
     Dates: start: 20060313, end: 20060406
  2. INTERFERON ALFA-2A [Suspect]
     Indication: RENAL CELL CARCINOMA STAGE UNSPECIFIED
     Dosage: 9 MIU, UNK
     Dates: start: 20060313, end: 20060403
  3. PARACETAMOL [Concomitant]
  4. PASPERTIN [Concomitant]
  5. NOVALGIN [Concomitant]

REACTIONS (3)
  - DEHYDRATION [None]
  - DIARRHOEA [None]
  - VOMITING [None]
